FAERS Safety Report 16756365 (Version 1)
Quarter: 2019Q4

REPORT INFORMATION
  Report Type: Spontaneous
  Country: US (occurrence: US)
  Receive Date: 20190829
  Receipt Date: 20190829
  Transmission Date: 20200122
  Serious: Yes (Hospitalization)
  Sender: FDA-Public Use
  Company Number: None

PATIENT
  Age: 78 Year
  Sex: Female

DRUGS (12)
  1. ACTEMRA [Suspect]
     Active Substance: TOCILIZUMAB
     Indication: TEMPORAL ARTERITIS
     Dosage: ?          OTHER FREQUENCY:ONCE WEEKLY;?
     Route: 058
     Dates: start: 20190411
  2. FLECAINIDE TAB 50 MG [Concomitant]
  3. ATORVASTATIN TAB 10 MG [Concomitant]
  4. ATENOL/CHLOR TAB 50-25 MG [Concomitant]
  5. CIPROFLOXACIN TAB 500 MG [Concomitant]
     Active Substance: CIPROFLOXACIN
  6. PANTOPRAZOLE TAB 40 MG [Concomitant]
  7. POT CHLORIDE TAB 10 MEQ ER [Concomitant]
  8. MELOXICAM TAB 15 MG [Concomitant]
  9. MONTELUKAST TAB 10 MG [Concomitant]
  10. PREDNISONE TAB 5 MG [Concomitant]
  11. OXYBUTININ TAB 10 MG ER [Concomitant]
  12. AMOX/K CLAV TAB 875-125 [Concomitant]

REACTIONS (1)
  - Cystitis [None]
